FAERS Safety Report 25493353 (Version 1)
Quarter: 2025Q2

REPORT INFORMATION
  Report Type: Spontaneous
  Country: VN (occurrence: VN)
  Receive Date: 20250630
  Receipt Date: 20250630
  Transmission Date: 20250716
  Serious: Yes (Other)
  Sender: JOHNSON AND JOHNSON
  Company Number: VN-JNJFOC-20250633561

PATIENT
  Sex: Female

DRUGS (9)
  1. DARATUMUMAB [Suspect]
     Active Substance: DARATUMUMAB
     Indication: Plasma cell myeloma
     Dosage: CYCLE 1-2; WEEK 1-8; DAY 1, 8, 15, 22
     Route: 065
  2. DARATUMUMAB [Suspect]
     Active Substance: DARATUMUMAB
     Dosage: CYCLE 3-6; WEEK 9-24; DAY 1, 15
     Route: 065
  3. DARATUMUMAB [Suspect]
     Active Substance: DARATUMUMAB
     Dosage: CYCLE 7 AND BEYOND; AFTER 25 WEEK; DAY 1
     Route: 065
  4. LENALIDOMIDE [Suspect]
     Active Substance: LENALIDOMIDE
     Indication: Plasma cell myeloma
     Dosage: CYCLE 1-2; WEEK 1-8; DAY 1-21
     Route: 065
  5. LENALIDOMIDE [Suspect]
     Active Substance: LENALIDOMIDE
     Dosage: CYCLE 3-6; WEEK 9-24; DAY 1-21
     Route: 065
  6. LENALIDOMIDE [Suspect]
     Active Substance: LENALIDOMIDE
     Dosage: CYCLE 7 AND BEYOND; WEEK 25 AND AFTER; DAY 1-21
     Route: 065
  7. DEXAMETHASONE [Suspect]
     Active Substance: DEXAMETHASONE
     Indication: Plasma cell myeloma
     Route: 065
  8. DEXAMETHASONE [Suspect]
     Active Substance: DEXAMETHASONE
     Route: 065
  9. DEXAMETHASONE [Suspect]
     Active Substance: DEXAMETHASONE

REACTIONS (5)
  - Deep vein thrombosis [Unknown]
  - Neutropenia [Unknown]
  - Anaemia [Unknown]
  - Chills [Unknown]
  - Urinary tract infection [Unknown]
